FAERS Safety Report 10420761 (Version 1)
Quarter: 2014Q3

REPORT INFORMATION
  Report Type: Spontaneous
  Country: US (occurrence: None)
  Receive Date: 20140709
  Receipt Date: 20140709
  Transmission Date: 20150326
  Serious: Yes (Other)
  Sender: FDA-Public Use
  Company Number: PHEH2013US005652

PATIENT
  Sex: Male
  Weight: 89.3 kg

DRUGS (3)
  1. PANTOPRAZOLE [Concomitant]
     Active Substance: PANTOPRAZOLE SODIUM
  2. ANDROGEL [Concomitant]
     Active Substance: TESTOSTERONE
  3. GLEEVEC [Suspect]
     Active Substance: IMATINIB MESYLATE
     Indication: CHRONIC MYELOID LEUKAEMIA
     Route: 048

REACTIONS (3)
  - Drug ineffective [None]
  - Neoplasm recurrence [None]
  - Chronic myeloid leukaemia [None]
